FAERS Safety Report 5546181-8 (Version None)
Quarter: 2007Q4

REPORT INFORMATION
  Report Type: 
  Country: None (occurrence: None)
  Receive Date: 20071206
  Receipt Date: 20071206
  Transmission Date: 20080405
  Serious: No
  Sender: FDA-Public Use
  Company Number: None

PATIENT
  Age: 80 Year
  Sex: Female

DRUGS (1)
  1. OXYCODONE AND ACETAMINOPHEN [Suspect]
     Dosage: TABLET

REACTIONS (1)
  - MEDICATION ERROR [None]
